FAERS Safety Report 17124980 (Version 1)
Quarter: 2019Q4

REPORT INFORMATION
  Report Type: Spontaneous
  Country: US (occurrence: US)
  Receive Date: 20191206
  Receipt Date: 20191206
  Transmission Date: 20200122
  Serious: Yes (Other)
  Sender: FDA-Public Use
  Company Number: US-ELI_LILLY_AND_COMPANY-US201911013108

PATIENT
  Age: 58 Year
  Sex: Female

DRUGS (1)
  1. TRULICITY [Suspect]
     Active Substance: DULAGLUTIDE
     Indication: PRODUCT USED FOR UNKNOWN INDICATION
     Dosage: 0.75 MG, SINGLE
     Route: 065
     Dates: start: 20191122, end: 20191122

REACTIONS (16)
  - Vision blurred [Recovering/Resolving]
  - Panic reaction [Unknown]
  - Urticaria [Unknown]
  - Pruritus [Recovering/Resolving]
  - Taste disorder [Recovering/Resolving]
  - Sensitive skin [Unknown]
  - Headache [Recovering/Resolving]
  - Eye swelling [Recovering/Resolving]
  - Acne [Recovering/Resolving]
  - Ocular hyperaemia [Recovering/Resolving]
  - Eye pruritus [Unknown]
  - Swelling face [Recovering/Resolving]
  - Eye irritation [Recovering/Resolving]
  - Noninfective gingivitis [Recovering/Resolving]
  - Hypertension [Recovering/Resolving]
  - Accidental exposure to product [Recovering/Resolving]

NARRATIVE: CASE EVENT DATE: 20191122
